FAERS Safety Report 10214316 (Version 1)
Quarter: 2014Q2

REPORT INFORMATION
  Report Type: Spontaneous
  Country: US (occurrence: None)
  Receive Date: 20140602
  Receipt Date: 20140602
  Transmission Date: 20141212
  Serious: Yes (Hospitalization)
  Sender: FDA-Public Use
  Company Number: None

PATIENT
  Age: 36 Year
  Sex: Female
  Weight: 91 kg

DRUGS (1)
  1. TAMIFLU 75 MG [Suspect]
     Indication: INFLUENZA
     Route: 048
     Dates: start: 20140512, end: 20140515

REACTIONS (8)
  - Pruritus [None]
  - Rash erythematous [None]
  - Lip swelling [None]
  - Swelling face [None]
  - Peripheral swelling [None]
  - Pyrexia [None]
  - Fatigue [None]
  - Dizziness [None]
